FAERS Safety Report 17196361 (Version 1)
Quarter: 2019Q4

REPORT INFORMATION
  Report Type: Spontaneous
  Country: ET (occurrence: ET)
  Receive Date: 20191224
  Receipt Date: 20191224
  Transmission Date: 20200122
  Serious: Yes (Hospitalization, Other)
  Sender: FDA-Public Use
  Company Number: ET-SCIEGEN PHARMACEUTICALS INC-2019SCILIT00383

PATIENT
  Age: 75 Year
  Sex: Female

DRUGS (6)
  1. ESOMEPRAZOLE. [Concomitant]
     Active Substance: ESOMEPRAZOLE MAGNESIUM
  2. ASPIRIN. [Suspect]
     Active Substance: ASPIRIN
  3. NEW PRODUCT [Interacting]
     Active Substance: UNSPECIFIED INGREDIENT
  4. ATORVASTATIN [Concomitant]
     Active Substance: ATORVASTATIN
  5. CLOPIDOGREL [Suspect]
     Active Substance: CLOPIDOGREL BISULFATE
  6. METOPROLOL. [Concomitant]
     Active Substance: METOPROLOL

REACTIONS (2)
  - Upper gastrointestinal haemorrhage [Recovered/Resolved]
  - Gastritis erosive [Unknown]
